FAERS Safety Report 12015036 (Version 1)
Quarter: 2016Q1

REPORT INFORMATION
  Report Type: Spontaneous
  Country: US (occurrence: US)
  Receive Date: 20160205
  Receipt Date: 20160205
  Transmission Date: 20160526
  Serious: No
  Sender: FDA-Public Use
  Company Number: US-AMGEN-USASP2015016196

PATIENT

DRUGS (11)
  1. CARBOPLATIN. [Suspect]
     Active Substance: CARBOPLATIN
     Indication: INVASIVE DUCTAL BREAST CARCINOMA
     Dosage: UNK
     Dates: start: 20140114
  2. TAMOXIFEN [Concomitant]
     Active Substance: TAMOXIFEN
     Dosage: UNK
  3. HERCEPTIN [Concomitant]
     Active Substance: TRASTUZUMAB
     Indication: INVASIVE DUCTAL BREAST CARCINOMA
     Dosage: UNK
     Dates: start: 20140114
  4. CARBOPLATIN. [Suspect]
     Active Substance: CARBOPLATIN
     Indication: INTRADUCTAL PROLIFERATIVE BREAST LESION
  5. TAXOTERE [Concomitant]
     Active Substance: DOCETAXEL
     Indication: INVASIVE DUCTAL BREAST CARCINOMA
     Dosage: UNK
     Dates: start: 20140114
  6. NEULASTA [Suspect]
     Active Substance: PEGFILGRASTIM
     Indication: PRODUCT USED FOR UNKNOWN INDICATION
     Dosage: UNK
     Route: 065
  7. PERJETA [Concomitant]
     Active Substance: PERTUZUMAB
     Indication: INVASIVE DUCTAL BREAST CARCINOMA
     Dosage: UNK
     Dates: start: 20140114
  8. TAXOTERE [Concomitant]
     Active Substance: DOCETAXEL
     Indication: INTRADUCTAL PROLIFERATIVE BREAST LESION
  9. HERCEPTIN [Concomitant]
     Active Substance: TRASTUZUMAB
     Indication: INTRADUCTAL PROLIFERATIVE BREAST LESION
  10. FEMARA [Concomitant]
     Active Substance: LETROZOLE
     Dosage: UNK
  11. PERJETA [Concomitant]
     Active Substance: PERTUZUMAB
     Indication: INTRADUCTAL PROLIFERATIVE BREAST LESION

REACTIONS (8)
  - Diarrhoea [Unknown]
  - Neuropathy peripheral [Unknown]
  - White blood cell count decreased [Unknown]
  - Fatigue [Unknown]
  - Bone pain [Recovering/Resolving]
  - Nausea [Unknown]
  - Vomiting [Unknown]
  - Hypersensitivity [Unknown]
